FAERS Safety Report 22366509 (Version 1)
Quarter: 2023Q2

REPORT INFORMATION
  Report Type: Report from Study
  Country: US (occurrence: US)
  Receive Date: 20230525
  Receipt Date: 20230525
  Transmission Date: 20230722
  Serious: Yes (Hospitalization)
  Sender: FDA-Public Use
  Company Number: US-002147023-NVSC2023US116499

PATIENT
  Sex: Female

DRUGS (1)
  1. ENTRESTO [Suspect]
     Active Substance: SACUBITRIL\VALSARTAN
     Indication: Product used for unknown indication
     Dosage: 1 DOSAGE FORM, BID (49/51 MG)
     Route: 048
     Dates: start: 2021

REACTIONS (12)
  - Palpitations [Unknown]
  - Dyspnoea [Unknown]
  - Supraventricular tachycardia [Unknown]
  - Pain in extremity [Unknown]
  - Arthralgia [Unknown]
  - Plantar fasciitis [Unknown]
  - Back pain [Unknown]
  - Weight increased [Unknown]
  - Cerebral disorder [Unknown]
  - Memory impairment [Unknown]
  - Vision blurred [Unknown]
  - Hypersensitivity [Unknown]

NARRATIVE: CASE EVENT DATE: 20220101
